FAERS Safety Report 9555006 (Version 1)
Quarter: 2013Q3

REPORT INFORMATION
  Report Type: Spontaneous
  Country: US (occurrence: None)
  Receive Date: 20130724
  Receipt Date: 20130724
  Transmission Date: 20140515
  Serious: No
  Sender: FDA-Public Use
  Company Number: PHEH2013US006221

PATIENT
  Age: 50 Year
  Sex: Female
  Weight: 81.6 kg

DRUGS (8)
  1. GILENYA [Suspect]
     Indication: RELAPSING-REMITTING MULTIPLE SCLEROSIS
     Route: 048
     Dates: start: 2000
  2. OMEPRAZOLE (OMEPRAZOLE) [Concomitant]
  3. RITALIN (METHYLPHENIDATE HYDROCHLORIDE) [Concomitant]
  4. LEVOTHYROXIN (LEVOTHYROXINE SODIUM) [Concomitant]
  5. PREMARIN (ESTROGENS CONJUGATED) [Concomitant]
  6. AMBIEN (ZOLPIDEM TARTRATE) [Concomitant]
  7. MAGNESIUM (MAGNESIUM) [Concomitant]
  8. VITAMIN C [Concomitant]

REACTIONS (4)
  - Fatigue [None]
  - Ear infection [None]
  - Bronchitis [None]
  - Cough [None]
